FAERS Safety Report 8582124-0 (Version None)
Quarter: 2012Q3

REPORT INFORMATION
  Report Type: 
  Country: None (occurrence: None)
  Receive Date: 20120809
  Receipt Date: 20120802
  Transmission Date: 20120928
  Serious: Yes (Hospitalization)
  Sender: FDA-Public Use
  Company Number: BE-PFIZER INC-2012189247

PATIENT
  Age: 39 Year
  Sex: Female
  Weight: 77 kg

DRUGS (6)
  1. CLIMEN (2E2+1CPA) [Concomitant]
     Indication: LUTEINISING HORMONE DEFICIENCY
     Dosage: UNK
     Dates: start: 19990914
  2. LEVOTHYROXINE [Concomitant]
     Indication: BLOOD THYROID STIMULATING HORMONE DECREASED
     Dosage: UNK
     Dates: start: 19970911
  3. CLIMEN (2E2+1CPA) [Concomitant]
     Indication: FOLLICLE-STIMULATING HORMONE DEFICIENCY
  4. ESTROGEN NOS [Concomitant]
     Indication: FOLLICLE-STIMULATING HORMONE DEFICIENCY
  5. GENOTROPIN [Suspect]
     Dosage: 1 MG, 7/WK
     Route: 058
     Dates: start: 20030319
  6. ESTROGEN NOS [Concomitant]
     Indication: LUTEINISING HORMONE DEFICIENCY
     Dosage: UNK
     Dates: start: 19990914

REACTIONS (1)
  - HYPOPHYSECTOMY [None]
